FAERS Safety Report 23472110 (Version 1)
Quarter: 2024Q1

REPORT INFORMATION
  Report Type: Spontaneous
  Country: US (occurrence: US)
  Receive Date: 20240202
  Receipt Date: 20240202
  Transmission Date: 20240409
  Serious: Yes (Other)
  Sender: FDA-Public Use
  Company Number: US-FERRINGPH-2024FE00327

PATIENT

DRUGS (4)
  1. FIRMAGON [Suspect]
     Active Substance: DEGARELIX ACETATE
     Indication: Prostate cancer
     Dosage: UNK
     Route: 065
     Dates: start: 20230410
  2. FIRMAGON [Suspect]
     Active Substance: DEGARELIX ACETATE
     Dosage: 2 DOSAGE FORM, MONTHLY
     Route: 065
     Dates: start: 20230303
  3. ENZALUTAMIDE [Suspect]
     Active Substance: ENZALUTAMIDE
     Indication: Prostate cancer
     Dosage: 160 MG, DAILY
     Route: 048
     Dates: start: 20230404, end: 202311
  4. PLAVIX [Concomitant]
     Active Substance: CLOPIDOGREL BISULFATE
     Indication: Product used for unknown indication
     Route: 065

REACTIONS (7)
  - Transient ischaemic attack [Unknown]
  - Blindness transient [Unknown]
  - Mood altered [Unknown]
  - Hot flush [Not Recovered/Not Resolved]
  - Insomnia [Unknown]
  - Middle insomnia [Unknown]
  - Nocturia [Unknown]

NARRATIVE: CASE EVENT DATE: 20230303
